FAERS Safety Report 18318127 (Version 2)
Quarter: 2020Q4

REPORT INFORMATION
  Report Type: Spontaneous
  Country: US (occurrence: US)
  Receive Date: 20200928
  Receipt Date: 20201001
  Transmission Date: 20210113
  Serious: No
  Sender: FDA-Public Use
  Company Number: US-PFIZER INC-2020370836

PATIENT
  Age: 57 Year
  Sex: Female

DRUGS (2)
  1. PREMARIN [Suspect]
     Active Substance: ESTROGENS, CONJUGATED
     Indication: HORMONE REPLACEMENT THERAPY
     Dosage: 0.9 MG, DAILY (TAKE 2 TABLETS BY MOUTH DAILY)
     Route: 048
     Dates: start: 20190624
  2. PREMARIN [Suspect]
     Active Substance: ESTROGENS, CONJUGATED
     Dosage: 0.45 MG, DAILY (TAKE 1 TAB BY MOUTH DAILY)
     Route: 048
     Dates: start: 20200916

REACTIONS (2)
  - Stress [Unknown]
  - Therapeutic product effect incomplete [Unknown]
